FAERS Safety Report 24911593 (Version 3)
Quarter: 2025Q3

REPORT INFORMATION
  Report Type: Report from Study
  Country: MX (occurrence: MX)
  Receive Date: 20250131
  Receipt Date: 20250803
  Transmission Date: 20251021
  Serious: Yes (Other)
  Sender: ALEXION PHARMACEUTICALS
  Company Number: MX-AstraZeneca-CH-00788910A

PATIENT
  Age: 57 Year
  Sex: Female
  Weight: 84 kg

DRUGS (9)
  1. DAPAGLIFLOZIN [Suspect]
     Active Substance: DAPAGLIFLOZIN
     Indication: Type 2 diabetes mellitus
     Dosage: 10 MILLIGRAM, QD
     Dates: start: 20241001, end: 20250315
  2. DAPAGLIFLOZIN [Suspect]
     Active Substance: DAPAGLIFLOZIN
     Dosage: 10 MILLIGRAM, QD
     Dates: start: 20250320
  3. CANDESARTAN CILEXETIL\HYDROCHLOROTHIAZIDE [Suspect]
     Active Substance: CANDESARTAN CILEXETIL\HYDROCHLOROTHIAZIDE
     Dosage: 16 MG/ 12.5 MG , QD
     Dates: end: 20241001
  4. LINAGLIPTIN [Concomitant]
     Active Substance: LINAGLIPTIN
     Indication: Diabetes mellitus
     Dosage: 5 MILLIGRAM, Q12H (1 TABLET )
     Dates: start: 202410
  5. METADOXINE [Concomitant]
     Active Substance: METADOXINE
     Indication: Hepatic steatosis
     Dosage: 500 MILLIGRAM, 2 TABLETS, QD
     Dates: start: 20241201
  6. BISOPROLOL FUMARATE [Concomitant]
     Active Substance: BISOPROLOL FUMARATE
     Indication: Hypertension
     Dosage: 1 DOSAGE FORM, QD
     Dates: start: 2005
  7. Almetec tri [Concomitant]
     Indication: Hypertension
  8. ESOMEPRAZOLE [Concomitant]
     Active Substance: ESOMEPRAZOLE
     Indication: Colitis
     Dosage: 40 MILLIGRAM, QD
     Dates: end: 20250121
  9. ESOMEPRAZOLE [Concomitant]
     Active Substance: ESOMEPRAZOLE
     Indication: Dyspepsia
     Dosage: 40 MILLIGRAM, QD
     Dates: start: 202503

REACTIONS (31)
  - Diarrhoea [Recovered/Resolved]
  - Gastrooesophageal reflux disease [Recovered/Resolved]
  - Decreased appetite [Recovered/Resolved]
  - Urinary tract discomfort [Recovered/Resolved]
  - Dyspepsia [Recovered/Resolved]
  - Weight decreased [Recovered/Resolved]
  - Therapy interrupted [Recovered/Resolved]
  - Headache [Not Recovered/Not Resolved]
  - Dysphonia [Not Recovered/Not Resolved]
  - Fatigue [Not Recovered/Not Resolved]
  - Irritability [Not Recovered/Not Resolved]
  - Blood cholesterol decreased [Recovered/Resolved]
  - Blood triglycerides decreased [Recovered/Resolved]
  - Oropharyngeal pain [Not Recovered/Not Resolved]
  - Abdominal discomfort [Recovering/Resolving]
  - Dry mouth [Not Recovered/Not Resolved]
  - Hepatic steatosis [Recovering/Resolving]
  - Polyuria [Not Recovered/Not Resolved]
  - Urinary tract disorder [Not Recovered/Not Resolved]
  - Diarrhoea [Recovering/Resolving]
  - Oropharyngeal pain [Not Recovered/Not Resolved]
  - Flatulence [Not Recovered/Not Resolved]
  - Abdominal distension [Not Recovered/Not Resolved]
  - Dizziness [Not Recovered/Not Resolved]
  - Nausea [Not Recovered/Not Resolved]
  - Gastrointestinal disorder [Recovering/Resolving]
  - Dyspepsia [Recovering/Resolving]
  - Abdominal discomfort [Recovering/Resolving]
  - Gastritis [Recovering/Resolving]
  - Food intolerance [Not Recovered/Not Resolved]
  - Asthenopia [Unknown]

NARRATIVE: CASE EVENT DATE: 20220101
